FAERS Safety Report 19704664 (Version 1)
Quarter: 2021Q3

REPORT INFORMATION
  Report Type: Spontaneous
  Country: JP (occurrence: JP)
  Receive Date: 20210816
  Receipt Date: 20210816
  Transmission Date: 20211014
  Serious: Yes (Hospitalization)
  Sender: FDA-Public Use
  Company Number: JP-TEVA-2021-JP-1942061

PATIENT
  Age: 55 Year
  Sex: Female

DRUGS (2)
  1. LOXOPROFEN [Suspect]
     Active Substance: LOXOPROFEN
     Indication: ABDOMINAL PAIN
     Dosage: DOSAGE: 2?3 TIMES/DAY
     Route: 065
  2. PREDNISOLONE. [Suspect]
     Active Substance: PREDNISOLONE
     Indication: SYSTEMIC LUPUS ERYTHEMATOSUS
     Dosage: DOSE: 7?10MG/DAY
     Route: 065

REACTIONS (2)
  - Intussusception [Recovered/Resolved]
  - Ileal ulcer [Recovered/Resolved]
